FAERS Safety Report 6220059-9 (Version None)
Quarter: 2009Q2

REPORT INFORMATION
  Report Type: 
  Country: None (occurrence: None)
  Receive Date: 20090609
  Receipt Date: 20090529
  Transmission Date: 20091009
  Serious: Yes (Hospitalization, Other)
  Sender: FDA-Public Use
  Company Number: PHHY2009GB19185

PATIENT
  Sex: Female

DRUGS (4)
  1. CLOZARIL [Suspect]
     Indication: SCHIZOPHRENIA
     Dosage: 400 MG DAILY
     Route: 048
     Dates: start: 20020502
  2. VALPROATE SODIUM [Concomitant]
     Dosage: 400 MG, BID
     Route: 048
  3. PAROXETINE HCL [Concomitant]
     Indication: DEPRESSION
     Dosage: 20 MG, QD
     Route: 048
     Dates: start: 20060517
  4. PREMIG [Concomitant]
     Dosage: 5 MG, QD

REACTIONS (11)
  - ANTIPSYCHOTIC DRUG LEVEL INCREASED [None]
  - CONVULSION [None]
  - DEEP VEIN THROMBOSIS [None]
  - FALL [None]
  - FIBRIN D DIMER INCREASED [None]
  - HYPOTENSION [None]
  - HYPOXIA [None]
  - PLATELET COUNT DECREASED [None]
  - PSYCHOTIC DISORDER [None]
  - SEDATION [None]
  - SYNCOPE [None]
